FAERS Safety Report 10514603 (Version 1)
Quarter: 2014Q4

REPORT INFORMATION
  Report Type: Other
  Country: US (occurrence: US)
  Receive Date: 20141013
  Receipt Date: 20141013
  Transmission Date: 20150528
  Serious: No
  Sender: FDA-Public Use
  Company Number: US-MYLANLABS-2014M1003596

PATIENT
  Age: 66 Year
  Sex: Female
  Weight: 74.83 kg

DRUGS (1)
  1. IBANDRONATE SODIUM TABLETS [Suspect]
     Active Substance: IBANDRONATE SODIUM
     Indication: OSTEOPENIA
     Dosage: 150 MG, MONTHLY
     Route: 048
     Dates: start: 2013, end: 20140517

REACTIONS (3)
  - Musculoskeletal pain [Recovering/Resolving]
  - Groin pain [Recovered/Resolved]
  - Pain in extremity [Recovered/Resolved]

NARRATIVE: CASE EVENT DATE: 201404
